FAERS Safety Report 5361208-4 (Version None)
Quarter: 2007Q2

REPORT INFORMATION
  Report Type: 
  Country: None (occurrence: None)
  Receive Date: 20070614
  Receipt Date: 20070529
  Transmission Date: 20071010
  Serious: Yes (Hospitalization)
  Sender: FDA-Public Use
  Company Number: DSA_29447_2007

PATIENT
  Sex: Female

DRUGS (4)
  1. TEMESTA (TEMESTA) (NOT SPECIFIED) [Suspect]
     Dosage: (2.5 MG QD ORAL), (2 MG QD ORAL)
     Route: 048
     Dates: start: 20060530, end: 20060530
  2. ZYPREXA [Suspect]
     Dosage: SEE IMAGE
     Route: 030
     Dates: start: 20060529, end: 20060529
  3. ZYPREXA [Suspect]
     Dosage: SEE IMAGE
     Route: 030
     Dates: start: 20060530, end: 20060530
  4. ZYPREXA [Suspect]
     Dosage: SEE IMAGE
     Route: 030
     Dates: start: 20060601

REACTIONS (5)
  - DIZZINESS [None]
  - HYPOTENSION [None]
  - OXYGEN SATURATION DECREASED [None]
  - SEDATION [None]
  - SOMNOLENCE [None]
